FAERS Safety Report 4337203-0 (Version None)
Quarter: 2004Q2

REPORT INFORMATION
  Report Type: 
  Country: None (occurrence: None)
  Receive Date: 20040412
  Receipt Date: 20040412
  Transmission Date: 20050107
  Serious: Yes (Other)
  Sender: FDA-Public Use
  Company Number: None

PATIENT
  Age: 55 Year
  Sex: Male
  Weight: 98.9 kg

DRUGS (2)
  1. QUETIAPINE [Suspect]
     Indication: SCHIZOPHRENIA
     Dosage: 100 MG BID ORAL
     Route: 048
     Dates: start: 20031015, end: 20031205
  2. QUETIAPINE FUMARATE [Concomitant]

REACTIONS (1)
  - RASH [None]
